FAERS Safety Report 11666922 (Version 1)
Quarter: 2015Q4

REPORT INFORMATION
  Report Type: Spontaneous
  Country: US (occurrence: US)
  Receive Date: 20151027
  Receipt Date: 20151027
  Transmission Date: 20160304
  Serious: Yes (Death)
  Sender: FDA-Public Use
  Company Number: US-CIPLA LTD.-2015US08125

PATIENT

DRUGS (6)
  1. SERTRALINE [Suspect]
     Active Substance: SERTRALINE HYDROCHLORIDE
     Route: 065
  2. NORDIAZEPAM [Suspect]
     Active Substance: NORDAZEPAM
     Route: 065
  3. OXYCODONE [Suspect]
     Active Substance: OXYCODONE
     Route: 065
  4. ALPRAZOLAM. [Suspect]
     Active Substance: ALPRAZOLAM
     Route: 065
  5. MEPROBAMATE. [Suspect]
     Active Substance: MEPROBAMATE
     Route: 065
  6. CARISOPRODOL. [Suspect]
     Active Substance: CARISOPRODOL
     Route: 065

REACTIONS (1)
  - Toxicity to various agents [Fatal]
